FAERS Safety Report 13830884 (Version 3)
Quarter: 2017Q4

REPORT INFORMATION
  Report Type: Report from Study
  Country: US (occurrence: US)
  Receive Date: 20170803
  Receipt Date: 20171213
  Transmission Date: 20180320
  Serious: Yes (Hospitalization)
  Sender: FDA-Public Use
  Company Number: US-ACTELION-A-NJ2017-153133

PATIENT
  Age: 42 Year
  Sex: Female
  Weight: 92.52 kg

DRUGS (12)
  1. VALPROIC ACID. [Concomitant]
     Active Substance: VALPROIC ACID
     Dosage: 500 MG, QD
     Dates: start: 200606
  2. FUROSEMIDE. [Concomitant]
     Active Substance: FUROSEMIDE
     Dosage: 20 MG, QD
  3. SPIRONOLACTONE APS [Concomitant]
     Dosage: 25 MG, QD
  4. METFORMIN [Concomitant]
     Active Substance: METFORMIN HYDROCHLORIDE
     Dosage: 250 MG, UNK
     Dates: start: 201612
  5. OPSUMIT [Suspect]
     Active Substance: MACITENTAN
     Indication: PULMONARY ARTERIAL HYPERTENSION
     Dosage: 10 MG, QD
     Route: 048
     Dates: start: 20170503
  6. WARFARIN [Concomitant]
     Active Substance: WARFARIN
     Dosage: 2.0 MG, PRN
  7. MIRENA [Concomitant]
     Active Substance: LEVONORGESTREL
  8. VELETRI [Suspect]
     Active Substance: EPOPROSTENOL
     Indication: PULMONARY ARTERIAL HYPERTENSION
     Dosage: 42 NG/KG, PER MIN
     Route: 042
     Dates: start: 20170408
  9. LOXAPINE. [Concomitant]
     Active Substance: LOXAPINE
     Dosage: 5.0 MG, QAM
     Dates: start: 200609
  10. FERROUS SULFATE. [Concomitant]
     Active Substance: FERROUS SULFATE
     Dosage: 235.0 MG, QD
  11. VELETRI [Suspect]
     Active Substance: EPOPROSTENOL
     Dosage: 15 NG/KG, PER MIN
     Route: 042
     Dates: start: 20170329
  12. IMIPRAMINE [Concomitant]
     Active Substance: IMIPRAMINE
     Dosage: 125.0 MG, QHS
     Dates: start: 200606

REACTIONS (22)
  - Catheter site swelling [Recovered/Resolved]
  - Blood culture positive [Recovered/Resolved]
  - Device dislocation [Recovered/Resolved]
  - Device related infection [Recovered/Resolved]
  - Medical device change [Recovered/Resolved]
  - Rash [Unknown]
  - Endocarditis [Recovered/Resolved]
  - Chills [Recovered/Resolved]
  - Cellulitis [Recovered/Resolved]
  - Catheter site pruritus [Unknown]
  - Catheter site rash [Unknown]
  - Catheter site pain [Recovered/Resolved]
  - Sepsis [Recovered/Resolved]
  - Weight decreased [Unknown]
  - Catheter site discharge [Recovered/Resolved]
  - Pyrexia [Recovered/Resolved]
  - Heart rate increased [Recovered/Resolved]
  - Catheter site infection [Recovered/Resolved]
  - Catheter site erythema [Recovered/Resolved]
  - Staphylococcus test positive [Recovered/Resolved]
  - Device related sepsis [Recovered/Resolved]
  - Cardiac valve vegetation [Recovered/Resolved]

NARRATIVE: CASE EVENT DATE: 20170621
